FAERS Safety Report 7901628-4 (Version None)
Quarter: 2011Q4

REPORT INFORMATION
  Report Type: 
  Country: None (occurrence: None)
  Receive Date: 20111104
  Receipt Date: 20111026
  Transmission Date: 20120403
  Serious: Yes (Other)
  Sender: FDA-Public Use
  Company Number: 2011AP001665

PATIENT
  Age: 33 Year
  Sex: Male

DRUGS (6)
  1. CARBAMAZEPINE [Concomitant]
  2. CLARITHROMYCIN [Suspect]
     Indication: RESPIRATORY TRACT INFECTION
     Dosage: 500 MG;BID;PO
     Route: 048
     Dates: start: 20110706, end: 20110717
  3. RAMIPRIL [Concomitant]
  4. SIMVASTATIN [Concomitant]
  5. INSULIN DETEMIR (INSULIN DETEMIR) [Concomitant]
  6. INSULIN ASPART (INSULIN ASPART) [Concomitant]

REACTIONS (2)
  - EMOTIONAL DISTRESS [None]
  - DIPLOPIA [None]
